FAERS Safety Report 18430298 (Version 1)
Quarter: 2020Q4

REPORT INFORMATION
  Report Type: Report from Study
  Country: None (occurrence: US)
  Receive Date: 20201026
  Receipt Date: 20201026
  Transmission Date: 20210114
  Serious: Yes (Hospitalization, Other)
  Sender: FDA-Public Use
  Company Number: US-ABBVIE-17K-163-2163881-00

PATIENT
  Age: 60 Year
  Sex: Female
  Weight: 70.37 kg

DRUGS (11)
  1. HUMIRA [Suspect]
     Active Substance: ADALIMUMAB
     Route: 058
     Dates: start: 20180116, end: 2018
  2. HUMIRA [Suspect]
     Active Substance: ADALIMUMAB
     Indication: RHEUMATOID ARTHRITIS
     Route: 058
     Dates: start: 20180901, end: 201901
  3. METHOTREXATE. [Concomitant]
     Active Substance: METHOTREXATE
     Indication: PRODUCT USED FOR UNKNOWN INDICATION
  4. PREDNISONE. [Suspect]
     Active Substance: PREDNISONE
     Indication: COUGH
     Route: 065
     Dates: start: 201711, end: 201711
  5. CORTISONE [Concomitant]
     Active Substance: CORTISONE
     Indication: PRODUCT USED FOR UNKNOWN INDICATION
  6. HUMIRA [Suspect]
     Active Substance: ADALIMUMAB
     Indication: RHEUMATOID ARTHRITIS
     Route: 058
     Dates: start: 2013
  7. HUMIRA [Suspect]
     Active Substance: ADALIMUMAB
     Route: 058
     Dates: start: 20171212, end: 201712
  8. HUMIRA [Suspect]
     Active Substance: ADALIMUMAB
     Route: 058
     Dates: start: 2019, end: 2020
  9. PREDNISONE. [Suspect]
     Active Substance: PREDNISONE
     Indication: DYSPNOEA
     Route: 065
     Dates: start: 201702, end: 2017
  10. HUMIRA [Suspect]
     Active Substance: ADALIMUMAB
     Route: 058
     Dates: start: 20171226, end: 20180109
  11. HUMIRA [Suspect]
     Active Substance: ADALIMUMAB
     Dosage: DOSE INCREASED
     Route: 058
     Dates: start: 2020

REACTIONS (45)
  - Pain [Recovered/Resolved]
  - Pain in extremity [Unknown]
  - Injection site erythema [Recovered/Resolved]
  - Arthralgia [Recovered/Resolved]
  - Fatigue [Unknown]
  - Back pain [Not Recovered/Not Resolved]
  - Muscular weakness [Unknown]
  - Immunodeficiency [Not Recovered/Not Resolved]
  - Gait disturbance [Not Recovered/Not Resolved]
  - Hypoaesthesia [Unknown]
  - Abdominal discomfort [Not Recovered/Not Resolved]
  - Therapeutic response shortened [Recovered/Resolved]
  - Abdominal pain upper [Recovered/Resolved]
  - Injection site swelling [Recovered/Resolved]
  - Injection site erythema [Unknown]
  - Herpes zoster [Recovered/Resolved]
  - Poor quality sleep [Not Recovered/Not Resolved]
  - Joint stiffness [Unknown]
  - Injection site erythema [Recovered/Resolved]
  - Abdominal pain upper [Not Recovered/Not Resolved]
  - Headache [Recovering/Resolving]
  - Arthralgia [Unknown]
  - Decreased appetite [Unknown]
  - Joint swelling [Not Recovered/Not Resolved]
  - Dyspnoea [Not Recovered/Not Resolved]
  - Therapeutic response shortened [Unknown]
  - Knee operation [Unknown]
  - Osteoarthritis [Unknown]
  - Insomnia [Unknown]
  - Pain [Recovered/Resolved]
  - Pain [Recovered/Resolved]
  - Nasopharyngitis [Not Recovered/Not Resolved]
  - Abdominal tenderness [Not Recovered/Not Resolved]
  - Illness [Recovered/Resolved]
  - Cough [Not Recovered/Not Resolved]
  - Injection site pruritus [Unknown]
  - Pain [Not Recovered/Not Resolved]
  - Arthralgia [Recovered/Resolved]
  - Discomfort [Not Recovered/Not Resolved]
  - Joint warmth [Unknown]
  - Joint stiffness [Recovered/Resolved]
  - Pruritus [Unknown]
  - Injection site pain [Not Recovered/Not Resolved]
  - Injection site erythema [Recovering/Resolving]
  - Abdominal pain [Recovered/Resolved]

NARRATIVE: CASE EVENT DATE: 2013
